FAERS Safety Report 14664119 (Version 1)
Quarter: 2018Q1

REPORT INFORMATION
  Report Type: Report from Study
  Country: US (occurrence: US)
  Receive Date: 20180321
  Receipt Date: 20180321
  Transmission Date: 20180509
  Serious: Yes (Hospitalization, Other)
  Sender: FDA-Public Use
  Company Number: US-BAYER-2018-003490

PATIENT
  Age: 72 Year
  Sex: Male

DRUGS (1)
  1. NEXAVAR [Suspect]
     Active Substance: SORAFENIB
     Indication: HEPATOCELLULAR CARCINOMA
     Dosage: 400 MG, BID
     Route: 048
     Dates: start: 20171213

REACTIONS (7)
  - Fluid intake reduced [None]
  - Feeding disorder [None]
  - Drug intolerance [None]
  - Confusional state [None]
  - General physical health deterioration [None]
  - Disorientation [None]
  - Dehydration [None]

NARRATIVE: CASE EVENT DATE: 20171219
